FAERS Safety Report 9264323 (Version 1)
Quarter: 2013Q2

REPORT INFORMATION
  Report Type: Report from Study
  Country: BW (occurrence: BW)
  Receive Date: 20130430
  Receipt Date: 20130430
  Transmission Date: 20140414
  Serious: Yes (Death, Hospitalization)
  Sender: FDA-Public Use
  Company Number: BW-GILEAD-2013-0074309

PATIENT
  Sex: 0

DRUGS (3)
  1. EFAVIRENZ/EMTRICITABINE/TENOFOVIR DISOPROXIL FUMARATE [Suspect]
     Indication: HIV INFECTION
  2. EMTRICITABINE/TENOFOVIR DISOPROXIL FUMARATE [Suspect]
     Indication: HIV INFECTION
  3. AMPHOTERICIN B [Concomitant]
     Indication: MENINGITIS CRYPTOCOCCAL

REACTIONS (1)
  - Immune reconstitution inflammatory syndrome [Fatal]
